FAERS Safety Report 11516434 (Version 1)
Quarter: 2015Q3

REPORT INFORMATION
  Report Type: Spontaneous
  Country: US (occurrence: US)
  Receive Date: 20150917
  Receipt Date: 20150917
  Transmission Date: 20151125
  Serious: No
  Sender: FDA-Public Use
  Company Number: US-PFIZER INC-2015298528

PATIENT
  Age: 27 Year
  Sex: Female
  Weight: 68.27 kg

DRUGS (1)
  1. RELPAX [Suspect]
     Active Substance: ELETRIPTAN HYDROBROMIDE
     Indication: MIGRAINE
     Dosage: 40 MG, UNK (EXCEED MORE THAN 100 OVER A 24 HOUR PERIOD)

REACTIONS (4)
  - Visual impairment [Unknown]
  - Overdose [Unknown]
  - Drug ineffective [Not Recovered/Not Resolved]
  - Impaired driving ability [Unknown]

NARRATIVE: CASE EVENT DATE: 20150903
